FAERS Safety Report 21629884 (Version 1)
Quarter: 2022Q4

REPORT INFORMATION
  Report Type: Report from Study
  Country: US (occurrence: US)
  Receive Date: 20221122
  Receipt Date: 20221122
  Transmission Date: 20230113
  Serious: Yes (Other)
  Sender: FDA-Public Use
  Company Number: US-BRISTOL-MYERS SQUIBB COMPANY-2022-137479

PATIENT
  Age: 82 Year
  Sex: Female

DRUGS (2)
  1. CAMZYOS [Suspect]
     Active Substance: MAVACAMTEN
     Indication: Hypertrophic cardiomyopathy
     Dosage: QD
     Route: 048
     Dates: start: 20220719
  2. CAMZYOS [Suspect]
     Active Substance: MAVACAMTEN
     Dosage: QD
     Route: 048

REACTIONS (1)
  - Pneumonia [Not Recovered/Not Resolved]
